APPROVED DRUG PRODUCT: FENOFIBRIC ACID
Active Ingredient: CHOLINE FENOFIBRATE
Strength: EQ 135MG FENOFIBRIC ACID
Dosage Form/Route: CAPSULE, DELAYED RELEASE;ORAL
Application: A200913 | Product #002
Applicant: PHARMOBEDIENT CONSULTING LLC
Approved: Mar 25, 2013 | RLD: No | RS: No | Type: DISCN